FAERS Safety Report 9765064 (Version 1)
Quarter: 2013Q4

REPORT INFORMATION
  Report Type: Spontaneous
  Country: US (occurrence: None)
  Receive Date: 20131213
  Receipt Date: 20131213
  Transmission Date: 20140711
  Serious: Yes (Other)
  Sender: FDA-Public Use
  Company Number: 2013SA032258

PATIENT
  Age: 40 Year
  Sex: Female

DRUGS (2)
  1. ICY HOT POWER GEL / UNKNOWN / UNKNOWN [Suspect]
     Indication: SINUS DISORDER
     Route: 061
  2. ICY HOT POWER GEL / UNKNOWN / UNKNOWN [Suspect]
     Indication: HEADACHE
     Route: 061

REACTIONS (8)
  - Chemical injury [None]
  - Skin exfoliation [None]
  - Skin discolouration [None]
  - Pain [None]
  - Off label use [None]
  - Application site burn [None]
  - Product deposit [None]
  - Lacrimation increased [None]
